FAERS Safety Report 18110505 (Version 2)
Quarter: 2020Q3

REPORT INFORMATION
  Report Type: Spontaneous
  Country: SK (occurrence: SK)
  Receive Date: 20200804
  Receipt Date: 20200911
  Transmission Date: 20201103
  Serious: Yes (Hospitalization, Other)
  Sender: FDA-Public Use
  Company Number: SK-ABBVIE-20K-260-3503957-00

PATIENT
  Age: 69 Year
  Sex: Female
  Weight: 53 kg

DRUGS (8)
  1. BRILIQUE [Concomitant]
     Active Substance: TICAGRELOR
     Indication: PRODUCT USED FOR UNKNOWN INDICATION
     Dosage: 1?0?1
     Route: 065
  2. NEBILET [Concomitant]
     Active Substance: NEBIVOLOL
     Indication: PRODUCT USED FOR UNKNOWN INDICATION
     Dosage: AHALF ?0?0
     Route: 065
  3. ATORIS [Concomitant]
     Active Substance: ATORVASTATIN CALCIUM
     Indication: PRODUCT USED FOR UNKNOWN INDICATION
     Dosage: 0?0?1?80
     Route: 065
  4. PRESTARIUM COMBI [Concomitant]
     Indication: PRODUCT USED FOR UNKNOWN INDICATION
     Dosage: 1?0?0?COMBI 5/1,25
     Route: 065
  5. SIOFOR [Concomitant]
     Active Substance: METFORMIN HYDROCHLORIDE
     Indication: PRODUCT USED FOR UNKNOWN INDICATION
     Dosage: 1?0?1
     Route: 065
  6. VASOPIRIN [Concomitant]
     Indication: PRODUCT USED FOR UNKNOWN INDICATION
     Dosage: 1?0?0
     Route: 065
  7. NOLPAZA [Concomitant]
     Active Substance: PANTOPRAZOLE SODIUM
     Indication: PRODUCT USED FOR UNKNOWN INDICATION
     Dosage: 1?0?0
     Route: 065
  8. SKYRIZI [Suspect]
     Active Substance: RISANKIZUMAB-RZAA
     Indication: PSORIASIS
     Dosage: WEEK 0, WEEK 4 AND EVERY 12 WEEKS AFTER?2X0,83ML/75MG
     Route: 058
     Dates: start: 20200703

REACTIONS (3)
  - Acute myocardial infarction [Recovering/Resolving]
  - Coronary artery disease [Unknown]
  - Myocardial ischaemia [Unknown]

NARRATIVE: CASE EVENT DATE: 20200703
